FAERS Safety Report 20353416 (Version 6)
Quarter: 2022Q1

REPORT INFORMATION
  Report Type: Report from Study
  Country: BE (occurrence: BE)
  Receive Date: 20220119
  Receipt Date: 20220217
  Transmission Date: 20220423
  Serious: Yes (Life-Threatening, Hospitalization)
  Sender: FDA-Public Use
  Company Number: BE-ABBVIE-22K-013-4239405-00

PATIENT
  Age: 79 Year
  Sex: Female
  Weight: 65 kg

DRUGS (13)
  1. HUMIRA [Suspect]
     Active Substance: ADALIMUMAB
     Indication: Colitis ulcerative
     Route: 058
     Dates: start: 20140618, end: 20150902
  2. MERCAPTOPURINE [Suspect]
     Active Substance: MERCAPTOPURINE
     Indication: Colitis ulcerative
     Route: 048
     Dates: start: 20160425, end: 20160501
  3. MERCAPTOPURINE [Suspect]
     Active Substance: MERCAPTOPURINE
     Route: 048
     Dates: start: 20160502, end: 20160601
  4. FOLIC ACID [Concomitant]
     Active Substance: FOLIC ACID
     Indication: Transient ischaemic attack
     Route: 048
     Dates: start: 20190528
  5. FOLIC ACID [Concomitant]
     Active Substance: FOLIC ACID
     Indication: Cerebrovascular accident prophylaxis
  6. BEFACTFORTE [Concomitant]
     Indication: Vitamin supplementation
     Route: 048
     Dates: start: 201912
  7. ATORSTATINEG [Concomitant]
     Indication: Cardiovascular event prophylaxis
     Route: 048
     Dates: start: 20200229
  8. OMEPRAZOLE [Concomitant]
     Active Substance: OMEPRAZOLE
     Indication: Gastrooesophageal reflux disease
     Route: 048
     Dates: start: 20200229
  9. ROSACED [Concomitant]
     Indication: Rosacea
     Route: 003
     Dates: start: 2019
  10. SALAZOPYRINE [Concomitant]
     Active Substance: SULFASALAZINE
     Indication: Colitis ulcerative
     Route: 048
     Dates: start: 20200217
  11. STELARA [Concomitant]
     Active Substance: USTEKINUMAB
     Indication: Colitis ulcerative
     Route: 058
     Dates: start: 20210803
  12. CALCIUM CARBONATE\CHOLECALCIFEROL [Concomitant]
     Active Substance: CALCIUM CARBONATE\CHOLECALCIFEROL
     Indication: Pathological fracture prophylaxis
     Route: 048
     Dates: start: 2019
  13. BUDESONIDE [Concomitant]
     Active Substance: BUDESONIDE
     Indication: Colitis ulcerative
     Route: 048
     Dates: start: 200411

REACTIONS (3)
  - Leukoencephalopathy [Not Recovered/Not Resolved]
  - Subdural haematoma [Not Recovered/Not Resolved]
  - Cerebral atrophy [Not Recovered/Not Resolved]

NARRATIVE: CASE EVENT DATE: 20211012
